FAERS Safety Report 6469108-3 (Version None)
Quarter: 2009Q4

REPORT INFORMATION
  Report Type: 
  Country: None (occurrence: None)
  Receive Date: 20091203
  Receipt Date: 20090114
  Transmission Date: 20100525
  Serious: Yes (Hospitalization)
  Sender: FDA-Public Use
  Company Number: GB-ELI_LILLY_AND_COMPANY-GB200708002191

PATIENT
  Sex: Female
  Weight: 94 kg

DRUGS (6)
  1. SOMATROPIN [Suspect]
     Indication: GROWTH HORMONE DEFICIENCY
     Dosage: 0.5 MG, DAILY (1/D)
     Route: 058
     Dates: start: 20031110, end: 20050516
  2. DESMOPRESSIN [Concomitant]
     Indication: DIABETES INSIPIDUS
     Dosage: UNK, UNKNOWN
     Route: 065
     Dates: start: 19941101
  3. HYDROCORTISONE [Concomitant]
     Indication: ADRENAL INSUFFICIENCY
     Dosage: UNK, UNKNOWN
     Route: 065
     Dates: start: 19840101
  4. LEVOTHYROXINE SODIUM [Concomitant]
     Indication: HYPOTHYROIDISM
     Dates: start: 19840101
  5. FEMOSTON [Concomitant]
     Indication: HYPOGONADISM FEMALE
     Dates: start: 19980201
  6. ALPHA [Concomitant]
     Indication: OSTEOPENIA
     Dates: start: 19980201

REACTIONS (1)
  - BRAIN MASS [None]
